FAERS Safety Report 4422957-5 (Version None)
Quarter: 2004Q3

REPORT INFORMATION
  Report Type: 
  Country: None (occurrence: None)
  Receive Date: 20040806
  Receipt Date: 20040726
  Transmission Date: 20050211
  Serious: Yes (Hospitalization)
  Sender: FDA-Public Use
  Company Number: US-JNJFOC-20040707032

PATIENT
  Age: 68 Year
  Sex: Female

DRUGS (17)
  1. INFLIXIMAB (INFLIXIMAB, RECOMBINANT) LYOPHILIZED POWDER [Suspect]
     Indication: RHEUMATOID ARTHRITIS
     Dosage: 1 IN 4 WEEK, INTRAVENOUS
     Route: 042
     Dates: start: 20010328
  2. ASPIRIN [Concomitant]
  3. FOLIC ACID [Concomitant]
  4. FOSAMAX (ALEBNDRONATE SODIUM) [Concomitant]
  5. HUMIBID (GUAIFENESIN) [Concomitant]
  6. LASIX [Concomitant]
  7. ISOSORBIDE (ISOSORBIDE) [Concomitant]
  8. METHOTREXATE [Concomitant]
  9. MULTIVITAMIN (MULTIVITAMINS) [Concomitant]
  10. NEURONTIN [Concomitant]
  11. NITROGLYCERIN [Concomitant]
  12. OXYCONTIN [Concomitant]
  13. PLAVIX [Concomitant]
  14. PREDNISONE [Concomitant]
  15. XANAX [Concomitant]
  16. FLOVENT [Concomitant]
  17. ALBUTEROL [Concomitant]

REACTIONS (1)
  - CORONARY ARTERY DISEASE [None]
